FAERS Safety Report 13119464 (Version 4)
Quarter: 2017Q1

REPORT INFORMATION
  Report Type: Report from Study
  Country: None (occurrence: RO)
  Receive Date: 20170116
  Receipt Date: 20170207
  Transmission Date: 20170428
  Serious: Yes (Death, Hospitalization)
  Sender: FDA-Public Use
  Company Number: RO-ABBVIE-17P-135-1841567-00

PATIENT
  Age: 67 Year
  Sex: Female

DRUGS (8)
  1. RIBAVIRIN. [Suspect]
     Active Substance: RIBAVIRIN
     Indication: HEPATITIS C
     Route: 048
     Dates: end: 20161213
  2. DIAPREL [Concomitant]
     Active Substance: GLICLAZIDE
     Indication: DIABETES MELLITUS
     Route: 048
  3. VIEKIRAX [Suspect]
     Active Substance: OMBITASVIR\PARITAPREVIR\RITONAVIR
     Indication: HEPATITIS C
     Route: 048
     Dates: start: 20161018, end: 20170104
  4. RIBAVIRIN. [Suspect]
     Active Substance: RIBAVIRIN
     Indication: HEPATIC CIRRHOSIS
  5. GLUCOBAY [Concomitant]
     Active Substance: ACARBOSE
     Indication: DIABETES MELLITUS
     Route: 048
  6. VIEKIRAX [Suspect]
     Active Substance: OMBITASVIR\PARITAPREVIR\RITONAVIR
     Indication: HEPATIC CIRRHOSIS
  7. EXVIERA [Suspect]
     Active Substance: DASABUVIR
     Indication: HEPATITIS C
     Route: 048
     Dates: start: 20161018, end: 20170104
  8. EXVIERA [Suspect]
     Active Substance: DASABUVIR
     Indication: HEPATIC CIRRHOSIS

REACTIONS (16)
  - Respiratory tract infection [Recovered/Resolved]
  - Pyrexia [Not Recovered/Not Resolved]
  - Cough [Unknown]
  - Transaminases increased [Not Recovered/Not Resolved]
  - Multiple organ dysfunction syndrome [Unknown]
  - Back pain [Recovering/Resolving]
  - Renal abscess [Recovered/Resolved]
  - Hepatic failure [Not Recovered/Not Resolved]
  - Rhinorrhoea [Unknown]
  - Ascites [Not Recovered/Not Resolved]
  - Pyelonephritis acute [Unknown]
  - Pyelonephritis acute [Unknown]
  - Urinary tract infection [Not Recovered/Not Resolved]
  - Sepsis [Fatal]
  - Pollakiuria [Unknown]
  - Anaemia [Unknown]

NARRATIVE: CASE EVENT DATE: 20161213
